FAERS Safety Report 8809047 (Version 1)
Quarter: 2012Q4

REPORT INFORMATION
  Report Type: Spontaneous
  Country: US (occurrence: None)
  Receive Date: 20120921
  Receipt Date: 20120921
  Transmission Date: 20130627
  Serious: Yes (Disabling)
  Sender: FDA-Public Use
  Company Number: None

PATIENT
  Age: 36 Year
  Sex: Female
  Weight: 65.9 kg

DRUGS (2)
  1. LEVAQUIN [Suspect]
     Indication: ACUTE SINUSITIS
     Route: 048
     Dates: start: 20110218, end: 20110227
  2. AVELOX [Suspect]
     Indication: ACUTE SINUSITIS
     Route: 048
     Dates: start: 20110701, end: 20110707

REACTIONS (23)
  - Hypoaesthesia [None]
  - Mood swings [None]
  - Panic attack [None]
  - Paraesthesia [None]
  - Hypoaesthesia [None]
  - Fine motor delay [None]
  - Aphasia [None]
  - Pain [None]
  - Muscle twitching [None]
  - Palpitations [None]
  - Raynaud^s phenomenon [None]
  - Nausea [None]
  - Vertigo [None]
  - Meniscus injury [None]
  - Tendon rupture [None]
  - Dysuria [None]
  - Dysphagia [None]
  - Bursitis [None]
  - Tendonitis [None]
  - Neuropathy peripheral [None]
  - Nervous system disorder [None]
  - Oedema peripheral [None]
  - Erythema [None]
